FAERS Safety Report 9012636 (Version 1)
Quarter: 2013Q1

REPORT INFORMATION
  Report Type: Spontaneous
  Country: GB (occurrence: GB)
  Receive Date: 20130114
  Receipt Date: 20130114
  Transmission Date: 20140127
  Serious: Yes (Hospitalization, Other)
  Sender: FDA-Public Use
  Company Number: PHHY2013GB002015

PATIENT
  Age: 60 Year
  Sex: Female
  Weight: 85 kg

DRUGS (14)
  1. LEFLUNOMIDE [Suspect]
     Indication: RHEUMATOID ARTHRITIS
     Dosage: 20 MG, QD
     Route: 048
     Dates: start: 2005, end: 20121001
  2. OMEPRAZOLE [Concomitant]
  3. EPLERENONE [Concomitant]
  4. FUROSEMIDE [Concomitant]
  5. ATORVASTATIN [Concomitant]
  6. RAMIPRIL [Concomitant]
  7. ROPINIROLE [Concomitant]
  8. ZOPICLONE [Concomitant]
  9. AMITRIPTYLINE [Concomitant]
  10. TRAMADOL [Concomitant]
  11. SERETIDE [Concomitant]
  12. FLIXOTIDE [Concomitant]
  13. RITUXIMAB [Concomitant]
  14. CO-CODAMOL [Concomitant]

REACTIONS (4)
  - Renal failure acute [Unknown]
  - Small intestinal obstruction [Unknown]
  - Pancreatitis acute [Recovering/Resolving]
  - Amylase increased [Unknown]
